FAERS Safety Report 17428545 (Version 1)
Quarter: 2020Q1

REPORT INFORMATION
  Report Type: Spontaneous
  Country: US (occurrence: US)
  Receive Date: 20200214
  Receipt Date: 20200214
  Transmission Date: 20200409
  Serious: No
  Sender: FDA-Public Use
  Company Number: None

PATIENT
  Age: 95 Year
  Sex: Female
  Weight: 60.3 kg

DRUGS (1)
  1. PROLIA [Suspect]
     Active Substance: DENOSUMAB
     Dosage: ?          OTHER FREQUENCY:EVERY 6 MONTHS;?
     Route: 058
     Dates: start: 20200109

REACTIONS (6)
  - Blood calcium decreased [None]
  - Blood phosphorus decreased [None]
  - Blood magnesium decreased [None]
  - Vitamin B12 decreased [None]
  - Vitamin D decreased [None]
  - Blood albumin abnormal [None]

NARRATIVE: CASE EVENT DATE: 20200204
